FAERS Safety Report 21090824 (Version 1)
Quarter: 2022Q3

REPORT INFORMATION
  Report Type: Spontaneous
  Country: FR (occurrence: FR)
  Receive Date: 20220716
  Receipt Date: 20220716
  Transmission Date: 20221027
  Serious: Yes (Other)
  Sender: FDA-Public Use
  Company Number: FR-BELPHARMA-2022000025

PATIENT
  Sex: Male

DRUGS (23)
  1. SERTRALINE [Suspect]
     Active Substance: SERTRALINE HYDROCHLORIDE
     Indication: Product used for unknown indication
     Dosage: 150 MILLIGRAM, ONCE A DAY
     Route: 048
     Dates: start: 20220613, end: 20220619
  2. SERTRALINE [Suspect]
     Active Substance: SERTRALINE HYDROCHLORIDE
     Dosage: 100 MILLIGRAM, ONCE A DAY
     Route: 048
     Dates: start: 20220620
  3. MIRTAZAPINE [Suspect]
     Active Substance: MIRTAZAPINE
     Indication: Product used for unknown indication
     Dosage: 15 MILLIGRAM, ONCE A DAY (1 TABLET AT BEDTIME)
     Route: 048
     Dates: start: 20220613, end: 20220619
  4. MIRTAZAPINE [Suspect]
     Active Substance: MIRTAZAPINE
     Dosage: 7.5 MILLIGRAM, ONCE A DAY (0.5 TABLET AT BEDTIME)
     Route: 048
     Dates: start: 20220620
  5. TEMOCILLIN [Suspect]
     Active Substance: TEMOCILLIN
     Indication: Sepsis
     Dosage: 6 GRAM, ONCE A DAY (CONTINUOUS INFUSION)
     Route: 042
     Dates: start: 20220608
  6. TEMOCILLIN [Suspect]
     Active Substance: TEMOCILLIN
     Indication: Klebsiella infection
  7. TEMOCILLIN [Suspect]
     Active Substance: TEMOCILLIN
     Indication: Urinary tract infection
  8. MORPHINE SULFATE [Concomitant]
     Active Substance: MORPHINE SULFATE
     Indication: Product used for unknown indication
     Dosage: 5 MILLIGRAM, AS NECESSARY (1 CAPSULE PER INTAKE, MAXIMUM 4 CAPSULES PER DAY (IF PAIN ABOVE 4/10))
     Route: 048
     Dates: start: 20220613
  9. MELATONIN [Concomitant]
     Active Substance: MELATONIN
     Indication: Product used for unknown indication
     Dosage: 2 MILLIGRAM, ONCE A DAY (1 TABLET AT BEDTIME)
     Route: 048
     Dates: start: 20220613
  10. FIASP [Concomitant]
     Active Substance: INSULIN ASPART
     Indication: Product used for unknown indication
     Dosage: 0.65 INTERNATIONAL UNIT, ONCE A DAY (AT 16HINSULINE PUMP, POSOLOGY IN IU/HOUR)
     Route: 058
     Dates: start: 20220613
  11. FIASP [Concomitant]
     Active Substance: INSULIN ASPART
     Dosage: 1.1 INTERNATIONAL UNIT, ONCE A DAY (AT 02HINSULINE PUMP, POSOLOGY IN IU/HOUR)
     Route: 058
     Dates: start: 20220613
  12. FIASP [Concomitant]
     Active Substance: INSULIN ASPART
     Dosage: 0.8 INTERNATIONAL UNIT, ONCE A DAY (AT 06HINSULINE PUMP, POSOLOGY IN IU/HOUR)
     Route: 058
     Dates: start: 20220613
  13. FIASP [Concomitant]
     Active Substance: INSULIN ASPART
     Dosage: 1 INTERNATIONAL UNIT, ONCE A DAY (AT 12HINSULINE PUMP, POSOLOGY IN IU/HOUR)
     Route: 058
     Dates: start: 20220613
  14. FIASP [Concomitant]
     Active Substance: INSULIN ASPART
     Dosage: 0.95 INTERNATIONAL UNIT, ONCE A DAY (AT 00HINSULINE PUMP, POSOLOGY IN IU/HOUR)
     Route: 058
     Dates: start: 20220613
  15. FIASP [Concomitant]
     Active Substance: INSULIN ASPART
     Dosage: 4 INTERNATIONAL UNIT, ONCE A DAY (BEFORE DINNER SYSTEMATIC MEAL-BOLUS (AT THE BEGINNING OF MEALS) )
     Route: 058
     Dates: start: 20220613
  16. FIASP [Concomitant]
     Active Substance: INSULIN ASPART
     Dosage: 4 INTERNATIONAL UNIT, ONCE A DAY (BEFORE LUNCHTIME SYSTEMATIC MEAL-BOLUS (AT THE BEGINNING OF MEALS)
     Route: 058
     Dates: start: 20220613
  17. FIASP [Concomitant]
     Active Substance: INSULIN ASPART
     Dosage: 2 INTERNATIONAL UNIT, ONCE A DAY (BEFORE BREAKFAST SYSTEMATIC MEAL-BOLUS (AT THE BEGINNING OF MEALS)
     Route: 058
     Dates: start: 20220613
  18. KARDEGIC [Concomitant]
     Active Substance: ASPIRIN DL-LYSINE
     Indication: Product used for unknown indication
     Dosage: 75 MILLIGRAM, ONCE A DAY (1 SACHET AT LUNCHTIME)
     Route: 048
     Dates: start: 20220613
  19. ACETAMINOPHEN [Concomitant]
     Active Substance: ACETAMINOPHEN
     Indication: Product used for unknown indication
     Dosage: 1 GRAM, FOUR TIMES/DAY (AT 00H, 06H, 12H 18H)
     Route: 048
     Dates: start: 20220613
  20. LANSOPRAZOLE [Concomitant]
     Active Substance: LANSOPRAZOLE
     Indication: Product used for unknown indication
     Dosage: 15 MILLIGRAM, ONCE A DAY (ONE CAPSULE IN THE MORNING)
     Route: 048
     Dates: start: 20220613
  21. POLYETHYLENE GLYCOL 4000 [Concomitant]
     Active Substance: POLYETHYLENE GLYCOL 4000
     Indication: Product used for unknown indication
     Dosage: 10 GRAM, 3 TIMES A DAY (1 SACHET IN THE MORNING1 SACHET AT LUNCHTIME 1 SACHET IN THE EVENING)
     Route: 048
     Dates: start: 20220613
  22. SERETIDE [Concomitant]
     Active Substance: FLUTICASONE PROPIONATE\SALMETEROL XINAFOATE
     Indication: Product used for unknown indication
     Dosage: 1 DOSAGE FORM, TWO TIMES A DAY (1 INHALATION IN THE MORNING1 INHALATION IN THE EVENING)
     Dates: start: 20220613
  23. OXAZEPAM [Concomitant]
     Active Substance: OXAZEPAM
     Indication: Product used for unknown indication
     Dosage: 10 MILLIGRAM, AS NECESSARY (1 TABLET PER INTAKE, MAXIMUM 3 TABLETS PER DAY (IF ANXIOUS))
     Route: 048
     Dates: start: 20220613

REACTIONS (1)
  - Cholestasis [Unknown]
